FAERS Safety Report 4315129-6 (Version None)
Quarter: 2004Q1

REPORT INFORMATION
  Report Type: 
  Country: None (occurrence: None)
  Receive Date: 20040310
  Receipt Date: 20040227
  Transmission Date: 20041129
  Serious: Yes (Congenital Anomaly)
  Sender: FDA-Public Use
  Company Number: US-GLAXOSMITHKLINE-A0500445A

PATIENT
  Sex: Male
  Weight: 0.9 kg

DRUGS (4)
  1. COMBIVIR [Suspect]
     Indication: HIV INFECTION
     Dosage: 2TAB PER DAY
     Dates: start: 20031017
  2. LEXIVA [Suspect]
     Indication: HIV INFECTION
     Dosage: 1400MG PER DAY
     Dates: start: 20031219
  3. NORVIR [Suspect]
     Indication: HIV INFECTION
     Dosage: 200MG PER DAY
     Dates: start: 20031219
  4. ZIDOVUDINE [Suspect]
     Indication: HIV INFECTION
     Dates: start: 20040219, end: 20040220

REACTIONS (7)
  - ALOPECIA [None]
  - CEREBRAL VENTRICLE DILATATION [None]
  - CONGENITAL CEREBRAL CYST [None]
  - CYST [None]
  - DRUG EXPOSURE DURING PREGNANCY [None]
  - HAEMORRHAGE [None]
  - PREMATURE BABY [None]
